FAERS Safety Report 21637922 (Version 2)
Quarter: 2022Q4

REPORT INFORMATION
  Report Type: Spontaneous
  Country: BR (occurrence: None)
  Receive Date: 20221124
  Receipt Date: 20221207
  Transmission Date: 20230112
  Serious: Yes (Other)
  Sender: FDA-Public Use
  Company Number: 2022A383012

PATIENT
  Age: 42 Year
  Sex: Female

DRUGS (3)
  1. LYNPARZA [Suspect]
     Active Substance: OLAPARIB
     Route: 048
  2. CARBOPLATIN/AZACITIDINE [Concomitant]
     Indication: Neoadjuvant therapy
     Dosage: SIX CYCLES
     Dates: start: 20211209, end: 20220425
  3. PACLITAXEL [Concomitant]
     Active Substance: PACLITAXEL
     Indication: Neoadjuvant therapy
     Dosage: SIX CYCLES
     Dates: start: 20211209, end: 20220425

REACTIONS (6)
  - Metastases to lung [Unknown]
  - Ovarian cancer recurrent [Not Recovered/Not Resolved]
  - Gastrointestinal obstruction [Not Recovered/Not Resolved]
  - Metastases to peritoneum [Unknown]
  - Malignant neoplasm progression [Unknown]
  - Acute abdomen [Unknown]

NARRATIVE: CASE EVENT DATE: 20211101
